FAERS Safety Report 8915819 (Version 2)
Quarter: 2012Q4

REPORT INFORMATION
  Report Type: 
  Country: US (occurrence: US)
  Receive Date: 20121119
  Receipt Date: 20121130
  Transmission Date: 20130627
  Serious: Yes (Other)
  Sender: FDA-Public Use
  Company Number: US-PFIZER INC-2012286994

PATIENT
  Age: 47 Year
  Sex: Female

DRUGS (6)
  1. NEURONTIN [Suspect]
     Dosage: 300 mg, 3x/day
     Route: 048
  2. TRAMADOL HYDROCHLORIDE [Concomitant]
     Dosage: UNK
  3. LABETALOL [Concomitant]
     Dosage: UNK
  4. FUROSEMIDE [Concomitant]
     Dosage: UNK
  5. SIMVASTATIN [Concomitant]
     Dosage: UNK
  6. BACLOFEN [Concomitant]
     Dosage: UNK

REACTIONS (1)
  - Intracranial aneurysm [Unknown]
